FAERS Safety Report 5191929-8 (Version None)
Quarter: 2006Q4

REPORT INFORMATION
  Report Type: 
  Country: None (occurrence: None)
  Receive Date: 20061220
  Receipt Date: 20061204
  Transmission Date: 20070319
  Serious: Yes (Hospitalization, Other)
  Sender: FDA-Public Use
  Company Number: 29762

PATIENT
  Age: 68 Year
  Sex: Male

DRUGS (3)
  1. THEOPHYLLINE [Suspect]
     Dosage: 800 MG (400 MG, 2 IN 1 DAY(S)) ORAL
     Route: 048
  2. CIPROFLOXACIN [Suspect]
     Dosage: 1000 MG (500 MG, 2 IN 1 DAY(S))
  3. ASPIRIN [Concomitant]

REACTIONS (14)
  - AGITATION [None]
  - ANXIETY [None]
  - DEPRESSION [None]
  - DRUG INTERACTION [None]
  - DRUG LEVEL ABOVE THERAPEUTIC [None]
  - DYSPNOEA [None]
  - HEART RATE INCREASED [None]
  - PRODUCTIVE COUGH [None]
  - RESTLESSNESS [None]
  - SINUS TACHYCARDIA [None]
  - SPUTUM PURULENT [None]
  - SUICIDAL IDEATION [None]
  - SUPRAVENTRICULAR EXTRASYSTOLES [None]
  - WHEEZING [None]
